FAERS Safety Report 22290819 (Version 2)
Quarter: 2024Q1

REPORT INFORMATION
  Report Type: Spontaneous
  Country: PT (occurrence: PT)
  Receive Date: 20230506
  Receipt Date: 20240319
  Transmission Date: 20240410
  Serious: Yes (Other)
  Sender: FDA-Public Use
  Company Number: PT-MLMSERVICE-20230420-4243481-1

PATIENT
  Age: 52 Year
  Sex: Male

DRUGS (19)
  1. GEMCITABINE [Suspect]
     Active Substance: GEMCITABINE
     Indication: Thyroid cancer metastatic
     Dosage: 1000 MILLIGRAM/SQ. METER (ADMINISTERED EVERY 2 TO 3 WEEKS (DEPENDING ON BLOOD COUNTS) )
     Route: 065
     Dates: start: 201806
  2. GEMCITABINE [Suspect]
     Active Substance: GEMCITABINE
     Indication: Follicular thyroid cancer
  3. GEMCITABINE [Suspect]
     Active Substance: GEMCITABINE
     Indication: Metastases to bone
  4. GEMCITABINE [Suspect]
     Active Substance: GEMCITABINE
     Indication: Metastases to lung
  5. GEMCITABINE [Suspect]
     Active Substance: GEMCITABINE
     Indication: Metastases to lymph nodes
  6. GEMCITABINE [Suspect]
     Active Substance: GEMCITABINE
     Indication: Metastases to the mediastinum
  7. OXALIPLATIN [Suspect]
     Active Substance: OXALIPLATIN
     Indication: Metastases to lymph nodes
     Dosage: 100 MILLIGRAM/SQ. METER (ADMINISTERED EVERY 2 TO 3 WEEKS (DEPENDING ON BLOOD COUNTS) )
     Route: 065
     Dates: start: 201806
  8. OXALIPLATIN [Suspect]
     Active Substance: OXALIPLATIN
     Indication: Thyroid cancer metastatic
  9. OXALIPLATIN [Suspect]
     Active Substance: OXALIPLATIN
     Indication: Follicular thyroid cancer
  10. OXALIPLATIN [Suspect]
     Active Substance: OXALIPLATIN
     Indication: Metastases to the mediastinum
  11. OXALIPLATIN [Suspect]
     Active Substance: OXALIPLATIN
     Indication: Metastases to bone
  12. OXALIPLATIN [Suspect]
     Active Substance: OXALIPLATIN
     Indication: Metastases to lung
  13. HYDROCHLOROTHIAZIDE\LOSARTAN [Concomitant]
     Active Substance: HYDROCHLOROTHIAZIDE\LOSARTAN
     Indication: Hypertension
     Dosage: UNK
     Route: 065
     Dates: start: 2014
  14. SUNITINIB [Concomitant]
     Active Substance: SUNITINIB
     Indication: Thyroid cancer metastatic
     Dosage: 37.5 MILLIGRAM, ONCE A DAY (LOWER DOSE )
     Route: 065
     Dates: start: 2015
  15. SUNITINIB [Concomitant]
     Active Substance: SUNITINIB
     Indication: Thyroid cancer metastatic
  16. SUNITINIB [Concomitant]
     Active Substance: SUNITINIB
     Indication: Metastases to bone
  17. SUNITINIB [Concomitant]
     Active Substance: SUNITINIB
     Indication: Metastases to lung
  18. SUNITINIB [Concomitant]
     Active Substance: SUNITINIB
     Indication: Metastases to lymph nodes
  19. SUNITINIB [Concomitant]
     Active Substance: SUNITINIB
     Indication: Metastases to the mediastinum

REACTIONS (3)
  - Haematotoxicity [Unknown]
  - Peripheral sensory neuropathy [Unknown]
  - Off label use [Unknown]
